FAERS Safety Report 9105182 (Version 2)
Quarter: 2013Q1

REPORT INFORMATION
  Report Type: Spontaneous
  Country: US (occurrence: US)
  Receive Date: 20130220
  Receipt Date: 20130305
  Transmission Date: 20140127
  Serious: Yes (Other)
  Sender: FDA-Public Use
  Company Number: US-PFIZER INC-2013061601

PATIENT
  Age: 61 Year
  Sex: Female
  Weight: 87.98 kg

DRUGS (20)
  1. LYRICA [Suspect]
     Indication: DIABETIC NEUROPATHY
     Dosage: 25 MG, 2X/DAY
     Route: 048
     Dates: start: 200504
  2. LYRICA [Suspect]
     Dosage: 50 MG, 2X/DAY
     Route: 048
  3. LYRICA [Suspect]
     Dosage: 100 MG, 2X/DAY
     Route: 048
  4. LYRICA [Suspect]
     Dosage: 150 MG, 2X/DAY
     Route: 048
  5. LYRICA [Suspect]
     Dosage: 450 MG, 2X/DAY
     Route: 048
  6. MAGNESIUM SULFATE [Concomitant]
     Indication: BLOOD MAGNESIUM DECREASED
     Dosage: 4 G, 2X/MONTH
  7. VITAMIN D SUPPLEMENT [Concomitant]
     Indication: VITAMIN D DEFICIENCY
     Dosage: 50000 UNITS, WEEKLY
  8. VICODIN [Concomitant]
     Indication: DIABETIC NEUROPATHY
     Dosage: FIVE TABLETS OF 10/325MG IN A DAY
  9. TRAMADOL HCL [Concomitant]
     Indication: DIABETIC NEUROPATHY
     Dosage: 100 MG, 3X/DAY
  10. TRICOR [Concomitant]
     Indication: BLOOD TRIGLYCERIDES INCREASED
     Dosage: 145 MG, UNK
  11. ZETIA [Concomitant]
     Indication: BLOOD CHOLESTEROL INCREASED
     Dosage: 10 MG, UNK
  12. ZANTAC [Concomitant]
     Indication: GASTROOESOPHAGEAL REFLUX DISEASE
     Dosage: 150 MG, 2X/DAY
  13. SYNTHROID [Concomitant]
     Indication: HYPOTHYROIDISM
     Dosage: 200 UG, UNK
  14. ZOFRAN [Concomitant]
     Indication: NAUSEA
     Dosage: 8 MG, UNK
  15. ALTACE [Concomitant]
     Dosage: 10 MG, UNK
  16. HYDROCHLOROTHIAZIDE [Concomitant]
     Dosage: 25 MG, 1X/DAY
  17. ASPIRIN [Concomitant]
     Dosage: 325 MG, UNK
  18. CLOPIDOGREL [Concomitant]
     Dosage: 75 MG, UNK
  19. XANAX [Concomitant]
     Dosage: 2 MG, 1X/DAY
  20. ATENOLOL [Concomitant]
     Dosage: 50 MG, 1X/DAY

REACTIONS (10)
  - Overdose [Unknown]
  - Weight decreased [Unknown]
  - Cerebrovascular accident [Unknown]
  - Drug effect incomplete [Unknown]
  - Gait disturbance [Unknown]
  - Pain [Unknown]
  - Tobacco user [Unknown]
  - Oedema [Unknown]
  - Blood magnesium decreased [Unknown]
  - Blood triglycerides abnormal [Unknown]
